FAERS Safety Report 20406375 (Version 3)
Quarter: 2022Q1

REPORT INFORMATION
  Report Type: Spontaneous
  Country: US (occurrence: US)
  Receive Date: 20220131
  Receipt Date: 20220311
  Transmission Date: 20220423
  Serious: Yes (Hospitalization)
  Sender: FDA-Public Use
  Company Number: US-BAYER-2022A014843

PATIENT
  Age: 78 Year
  Sex: Male

DRUGS (1)
  1. KERENDIA [Suspect]
     Active Substance: FINERENONE

REACTIONS (2)
  - Blood creatinine increased [None]
  - Hyperkalaemia [None]
